FAERS Safety Report 8098966-4 (Version None)
Quarter: 2012Q1

REPORT INFORMATION
  Report Type: 
  Country: None (occurrence: None)
  Receive Date: 20120129
  Receipt Date: 20111004
  Transmission Date: 20120608
  Serious: No
  Sender: FDA-Public Use
  Company Number: US-ABBOTT-11P-163-0860754-00

PATIENT
  Sex: Female

DRUGS (6)
  1. PREDNISONE TAB [Concomitant]
     Indication: INFLAMMATION
     Dosage: DAILY
  2. HUMIRA [Suspect]
     Indication: CROHN'S DISEASE
     Dosage: DAY ONE
     Dates: start: 20110930
  3. PRILOSEC [Concomitant]
     Indication: DYSPEPSIA
     Dosage: DAILY
  4. ANTACID [Concomitant]
     Indication: DYSPEPSIA
     Dosage: DAILY
  5. FLAGYL [Concomitant]
     Indication: FUNGAL INFECTION
     Dates: start: 20110920
  6. VITAMIN D [Concomitant]
     Indication: VITAMIN SUPPLEMENTATION
     Dosage: DAILY

REACTIONS (1)
  - INJECTION SITE PAIN [None]
